FAERS Safety Report 25603008 (Version 1)
Quarter: 2025Q3

REPORT INFORMATION
  Report Type: Spontaneous
  Country: RU (occurrence: RU)
  Receive Date: 20250724
  Receipt Date: 20250724
  Transmission Date: 20251020
  Serious: Yes (Other)
  Sender: GLAXOSMITHKLINE
  Company Number: RU-GSK-RU2025GSK095162

PATIENT
  Age: 30 Year
  Sex: Female
  Weight: 80 kg

DRUGS (9)
  1. LAMOTRIGINE [Interacting]
     Active Substance: LAMOTRIGINE
     Indication: Affective disorder
  2. LAMOTRIGINE [Interacting]
     Active Substance: LAMOTRIGINE
     Dosage: 200 MG, 1D
  3. VITAMINS [Interacting]
     Active Substance: VITAMINS
     Indication: Product used for unknown indication
     Dosage: 1000 UG, 1D
  4. CARIPRAZINE [Concomitant]
     Active Substance: CARIPRAZINE
     Indication: Antipsychotic therapy
  5. ARIPIPRAZOLE [Concomitant]
     Active Substance: ARIPIPRAZOLE
     Indication: Antipsychotic therapy
  6. OLANZAPINE [Concomitant]
     Active Substance: OLANZAPINE
     Indication: Antipsychotic therapy
  7. RISPERIDONE [Concomitant]
     Active Substance: RISPERIDONE
     Indication: Antipsychotic therapy
  8. LURASIDONE [Concomitant]
     Active Substance: LURASIDONE
     Indication: Antipsychotic therapy
  9. ZIPRASIDONE [Concomitant]
     Active Substance: ZIPRASIDONE
     Indication: Affective disorder
     Dosage: 60 MG, 1D

REACTIONS (3)
  - Bipolar disorder [Recovered/Resolved]
  - Mental disorder [Recovered/Resolved]
  - Drug interaction [Recovered/Resolved]
